FAERS Safety Report 18912356 (Version 2)
Quarter: 2021Q1

REPORT INFORMATION
  Report Type: Spontaneous
  Country: US (occurrence: US)
  Receive Date: 20210218
  Receipt Date: 20210325
  Transmission Date: 20210420
  Serious: No
  Sender: FDA-Public Use
  Company Number: US-BRISTOL-MYERS SQUIBB COMPANY-BMS-2021-014047

PATIENT
  Age: 70 Year
  Sex: Male
  Weight: 79.38 kg

DRUGS (3)
  1. ELIQUIS [Suspect]
     Active Substance: APIXABAN
     Indication: CEREBROVASCULAR ACCIDENT PROPHYLAXIS
     Dosage: 5 MILLIGRAM, BID
     Route: 048
     Dates: start: 2019
  2. COVID?19 VACCINE [Concomitant]
     Indication: PRODUCT USED FOR UNKNOWN INDICATION
     Dosage: SECOND DOSE, LEFT ARM
     Route: 065
     Dates: start: 20210119
  3. ATENOLOL. [Concomitant]
     Active Substance: ATENOLOL
     Indication: ATRIAL FIBRILLATION
     Dosage: 37.5 MILLIGRAM, QD
     Route: 048

REACTIONS (1)
  - Heart rate increased [Unknown]

NARRATIVE: CASE EVENT DATE: 20210209
